FAERS Safety Report 14332762 (Version 2)
Quarter: 2019Q1

REPORT INFORMATION
  Report Type: Spontaneous
  Country: JP (occurrence: JP)
  Receive Date: 20171228
  Receipt Date: 20190214
  Transmission Date: 20190417
  Serious: Yes (Death, Life-Threatening, Hospitalization, Other)
  Sender: FDA-Public Use
  Company Number: JP-ELI_LILLY_AND_COMPANY-JP201712003393

PATIENT
  Age: 62 Year
  Sex: Male
  Weight: 55 kg

DRUGS (21)
  1. CYRAMZA [Suspect]
     Active Substance: RAMUCIRUMAB
     Indication: LUNG SQUAMOUS CELL CARCINOMA RECURRENT
     Dosage: 10 MG/KG, OTHER
     Route: 041
     Dates: start: 20171114, end: 20171114
  2. OXYNORM [Concomitant]
     Active Substance: OXYCODONE HYDROCHLORIDE
     Dosage: UNK
     Route: 048
     Dates: end: 20171123
  3. RISUMIC [Concomitant]
     Active Substance: AMEZINIUM METILSULFATE
     Dosage: UNK
     Route: 048
  4. RANMARK [Concomitant]
     Active Substance: DENOSUMAB
     Indication: METASTASES TO BONE
     Dosage: UNK
     Route: 065
  5. BARACLUDE [Concomitant]
     Active Substance: ENTECAVIR
     Indication: HEPATITIS B
     Dosage: UNK
     Route: 048
  6. MAGMITT [Concomitant]
     Active Substance: MAGNESIUM OXIDE
     Dosage: UNK
     Route: 048
  7. ONBREZ [Concomitant]
     Active Substance: INDACATEROL
     Route: 055
  8. G LASTA [Concomitant]
     Active Substance: PEGFILGRASTIM
     Indication: COLONY STIMULATING FACTOR THERAPY
     Dosage: 3.6 MG, UNK
     Route: 058
     Dates: start: 20171115
  9. LOXOPROFEN [Concomitant]
     Active Substance: LOXOPROFEN
     Dosage: UNK
     Route: 048
     Dates: end: 20171122
  10. ROPION [Concomitant]
     Active Substance: FLURBIPROFEN AXETIL
     Dosage: 50 MG, QID
     Route: 042
     Dates: start: 20171123, end: 20171125
  11. OXIFAST [Concomitant]
     Active Substance: OXYCODONE
     Indication: BACK PAIN
     Dosage: 25 MG, DAILY
     Route: 042
     Dates: start: 20171124
  12. MIYA-BM [Concomitant]
     Active Substance: CLOSTRIDIUM BUTYRICUM SPORES STRAIN M-55
     Dosage: UNK
     Route: 048
  13. LIXIANA [Concomitant]
     Active Substance: EDOXABAN TOSYLATE
     Dosage: UNK
     Route: 048
  14. OXYCONTIN [Concomitant]
     Active Substance: OXYCODONE HYDROCHLORIDE
     Indication: BACK PAIN
     Dosage: 20 MG, DAILY
     Route: 048
     Dates: end: 20171116
  15. OXYCONTIN [Concomitant]
     Active Substance: OXYCODONE HYDROCHLORIDE
     Dosage: 30 MG, DAILY
     Route: 048
     Dates: start: 20171117, end: 20171123
  16. OMEPRAZOLE. [Concomitant]
     Active Substance: OMEPRAZOLE
     Dosage: 20 MG, BID
     Route: 042
     Dates: start: 20171123
  17. ESOMEPRAZOLE MAGNESIUM. [Concomitant]
     Active Substance: ESOMEPRAZOLE MAGNESIUM
     Route: 048
  18. DENOTAS [Concomitant]
     Active Substance: CALCIUM CARBONATE\CHOLECALCIFEROL\MAGNESIUM CARBONATE
     Dosage: UNK
     Route: 048
  19. DOCETAXEL. [Concomitant]
     Active Substance: DOCETAXEL
     Indication: LUNG SQUAMOUS CELL CARCINOMA RECURRENT
     Dosage: 60 MG/M2, OTHER
     Route: 041
     Dates: start: 20171114, end: 20171114
  20. LYRICA [Concomitant]
     Active Substance: PREGABALIN
     Dosage: UNK
     Route: 048
  21. AMITRIPTYLINE HYDROCHLORIDE. [Concomitant]
     Active Substance: AMITRIPTYLINE HYDROCHLORIDE
     Dosage: UNK
     Route: 048

REACTIONS (9)
  - Malignant neoplasm progression [Fatal]
  - Alanine aminotransferase increased [Unknown]
  - Ammonia increased [Unknown]
  - Drug-induced liver injury [Unknown]
  - Aspartate aminotransferase increased [Unknown]
  - White blood cell count decreased [Unknown]
  - Posterior reversible encephalopathy syndrome [Not Recovered/Not Resolved]
  - Pyrexia [Unknown]
  - White blood cell count increased [Unknown]

NARRATIVE: CASE EVENT DATE: 20171119
